FAERS Safety Report 15150624 (Version 1)
Quarter: 2018Q3

REPORT INFORMATION
  Report Type: Spontaneous
  Country: GR (occurrence: GR)
  Receive Date: 20180716
  Receipt Date: 20180716
  Transmission Date: 20181010
  Serious: Yes (Death, Hospitalization)
  Sender: FDA-Public Use
  Company Number: GR-B. BRAUN MEDICAL INC.-2052152

PATIENT
  Age: 24 Month
  Sex: Male

DRUGS (9)
  1. METRONIDAZOLE INJECTION USP (5 MG/ML) IN PAB? PLASTIC CONTAINER (NDA 0 [Suspect]
     Active Substance: METRONIDAZOLE
     Indication: INFECTIOUS MONONUCLEOSIS
  2. ETOPOSIDE. [Suspect]
     Active Substance: ETOPOSIDE
  3. GANCICLOVIR. [Suspect]
     Active Substance: GANCICLOVIR
  4. TEICOPLANIN [Suspect]
     Active Substance: TEICOPLANIN
  5. ALBUMIN [HUMAN SERUM?ALBUMIN] [Suspect]
     Active Substance: ALBUMIN HUMAN
  6. RIFAXIMIN. [Suspect]
     Active Substance: RIFAXIMIN
  7. DEXAMETHASONE. [Suspect]
     Active Substance: DEXAMETHASONE
     Route: 041
  8. ACICLOVIR [Suspect]
     Active Substance: ACYCLOVIR
  9. METHYLPREDNISOLONE. [Suspect]
     Active Substance: METHYLPREDNISOLONE

REACTIONS (1)
  - Drug ineffective [Fatal]
